FAERS Safety Report 15606698 (Version 2)
Quarter: 2018Q4

REPORT INFORMATION
  Report Type: Spontaneous
  Country: FR (occurrence: FR)
  Receive Date: 20181112
  Receipt Date: 20181130
  Transmission Date: 20190205
  Serious: Yes (Death)
  Sender: FDA-Public Use
  Company Number: FR-ALLERGAN-1852917US

PATIENT
  Age: 0 Day
  Sex: Male
  Weight: 1.24 kg

DRUGS (6)
  1. TARDYFERON [Suspect]
     Active Substance: FERROUS SULFATE
     Indication: MATERNAL EXPOSURE TIMING UNSPECIFIED
     Dosage: UNK
     Route: 064
     Dates: start: 20160616
  2. AUGMENTIN [Suspect]
     Active Substance: AMOXICILLIN\CLAVULANATE POTASSIUM
     Indication: MATERNAL EXPOSURE TIMING UNSPECIFIED
     Dosage: UNK
     Route: 064
     Dates: start: 20160616, end: 20160701
  3. MEDIGYNE [Suspect]
     Active Substance: DEVICE
     Dosage: UNK
     Route: 064
     Dates: start: 20160616, end: 20160620
  4. FOSFOMYCIN TROMETHAMINE - BP [Suspect]
     Active Substance: FOSFOMYCIN TROMETHAMINE
     Indication: MATERNAL EXPOSURE TIMING UNSPECIFIED
     Dosage: 3 G, SINGLE
     Route: 064
     Dates: start: 20160609, end: 20160609
  5. GYNOPHILUS [Suspect]
     Active Substance: LACTOBACILLUS RHAMNOSUS
     Indication: MATERNAL EXPOSURE TIMING UNSPECIFIED
     Dosage: UNK
     Route: 064
     Dates: start: 20160616, end: 20160620
  6. MEDIGYNE [Suspect]
     Active Substance: DEVICE
     Indication: MATERNAL EXPOSURE TIMING UNSPECIFIED
     Dosage: UNK
     Route: 064
     Dates: start: 20160628, end: 20160630

REACTIONS (2)
  - Foetal exposure timing unspecified [Unknown]
  - Foetal death [Fatal]

NARRATIVE: CASE EVENT DATE: 20160701
